FAERS Safety Report 5800209-6 (Version None)
Quarter: 2008Q3

REPORT INFORMATION
  Report Type: 
  Country: None (occurrence: None)
  Receive Date: 20080703
  Receipt Date: 20080620
  Transmission Date: 20090109
  Serious: Yes (Death, Other)
  Sender: FDA-Public Use
  Company Number: US-ELI_LILLY_AND_COMPANY-US200805001039

PATIENT
  Sex: Female
  Weight: 140 kg

DRUGS (2)
  1. XIGRIS [Suspect]
     Indication: SEPSIS
     Dosage: 24 D/F, UNK
     Route: 042
     Dates: start: 20080307, end: 20080309
  2. LOVENOX [Concomitant]
     Dosage: 30 MG, DAILY (1/D)

REACTIONS (5)
  - HAEMATURIA [None]
  - HAEMORRHAGE [None]
  - INTERNATIONAL NORMALISED RATIO INCREASED [None]
  - PROTHROMBIN TIME PROLONGED [None]
  - SEPSIS [None]
